FAERS Safety Report 13338935 (Version 1)
Quarter: 2017Q1

REPORT INFORMATION
  Report Type: Report from Study
  Country: None (occurrence: IT)
  Receive Date: 20170315
  Receipt Date: 20170315
  Transmission Date: 20170428
  Serious: Yes (Life-Threatening, Hospitalization)
  Sender: FDA-Public Use
  Company Number: IT-ABBVIE-15P-083-1470133-00

PATIENT
  Age: 72 Year
  Sex: Female
  Weight: 70 kg

DRUGS (3)
  1. INSULINA [Concomitant]
     Active Substance: INSULIN NOS
     Indication: DIABETES MELLITUS
     Route: 030
     Dates: start: 1958
  2. VENETOCLAX [Suspect]
     Active Substance: VENETOCLAX
     Indication: CHRONIC LYMPHOCYTIC LEUKAEMIA
     Route: 048
  3. GA101 [Suspect]
     Active Substance: OBINUTUZUMAB
     Indication: CHRONIC LYMPHOCYTIC LEUKAEMIA
     Dosage: MOST RECENT DOSE OF OBINUTUZUMAB PRIOR TO AE 23/SEP/2015
     Route: 042
     Dates: start: 20150923

REACTIONS (1)
  - Angina pectoris [Recovered/Resolved]

NARRATIVE: CASE EVENT DATE: 20150923
